FAERS Safety Report 6491229-X (Version None)
Quarter: 2009Q4

REPORT INFORMATION
  Report Type: 
  Country: None (occurrence: None)
  Receive Date: 20091211
  Receipt Date: 20091202
  Transmission Date: 20100525
  Serious: Yes (Hospitalization)
  Sender: FDA-Public Use
  Company Number: PHHY2009JP53280

PATIENT
  Age: 19 Year
  Sex: Female

DRUGS (1)
  1. VOLTAREN [Suspect]
     Indication: INTERVERTEBRAL DISC PROTRUSION

REACTIONS (3)
  - CELLULITIS [None]
  - HEPATIC FUNCTION ABNORMAL [None]
  - LYMPHOEDEMA [None]
